FAERS Safety Report 13873349 (Version 2)
Quarter: 2017Q3

REPORT INFORMATION
  Report Type: Spontaneous
  Country: US (occurrence: US)
  Receive Date: 20170816
  Receipt Date: 20170907
  Transmission Date: 20171127
  Serious: Yes (Disabling, Other)
  Sender: FDA-Public Use
  Company Number: US-BRISTOL-MYERS SQUIBB COMPANY-BMS-2017-072022

PATIENT
  Sex: Male

DRUGS (2)
  1. ABILIFY [Suspect]
     Active Substance: ARIPIPRAZOLE
     Indication: BIPOLAR DISORDER
     Dosage: 10 MG, UNK
     Route: 065
  2. ABILIFY [Suspect]
     Active Substance: ARIPIPRAZOLE
     Indication: DEPRESSION
     Route: 065

REACTIONS (9)
  - Disability [Unknown]
  - Anxiety [Unknown]
  - Impulsive behaviour [Unknown]
  - Obsessive-compulsive disorder [Unknown]
  - Emotional distress [Unknown]
  - Gambling [Unknown]
  - Pain [Unknown]
  - Condition aggravated [Unknown]
  - Injury [Unknown]
